FAERS Safety Report 10728519 (Version 1)
Quarter: 2015Q1

REPORT INFORMATION
  Report Type: Report from Study
  Country: CA (occurrence: CA)
  Receive Date: 20150122
  Receipt Date: 20150122
  Transmission Date: 20150721
  Serious: Yes (Hospitalization, Other)
  Sender: FDA-Public Use
  Company Number: CA-AMGEN-CANSL2015004196

PATIENT
  Age: 65 Year
  Sex: Female

DRUGS (2)
  1. PANTOLOC                           /01263204/ [Concomitant]
     Active Substance: PANTOPRAZOLE SODIUM
  2. PROLIA [Suspect]
     Active Substance: DENOSUMAB
     Indication: OSTEOPOROSIS POSTMENOPAUSAL
     Dosage: 60 MG, Q6MO
     Route: 058
     Dates: start: 20120717

REACTIONS (5)
  - Gastrectomy [Unknown]
  - Post procedural infection [Unknown]
  - Diarrhoea [Not Recovered/Not Resolved]
  - Gastrointestinal surgery [Unknown]
  - Gastric bypass [Unknown]
